FAERS Safety Report 6805962-0 (Version None)
Quarter: 2010Q2

REPORT INFORMATION
  Report Type: 
  Country: None (occurrence: None)
  Receive Date: 20100629
  Receipt Date: 20080112
  Transmission Date: 20101027
  Serious: No
  Sender: FDA-Public Use
  Company Number: US-PFIZER INC-2007090846

PATIENT
  Sex: Male
  Weight: 96.89 kg

DRUGS (6)
  1. VIAGRA [Suspect]
     Indication: ERECTILE DYSFUNCTION
     Route: 048
     Dates: start: 20070924
  2. CHANTIX [Concomitant]
  3. MICARDIS [Concomitant]
  4. CARDIZEM SR [Concomitant]
  5. METFORMIN HCL [Concomitant]
  6. CLONIDINE [Concomitant]

REACTIONS (1)
  - DRUG INEFFECTIVE [None]
